FAERS Safety Report 6148432-8 (Version None)
Quarter: 2009Q2

REPORT INFORMATION
  Report Type: 
  Country: None (occurrence: None)
  Receive Date: 20090408
  Receipt Date: 20090403
  Transmission Date: 20091009
  Serious: Yes (Other)
  Sender: FDA-Public Use
  Company Number: JP-PFIZER INC-2009183970

PATIENT

DRUGS (2)
  1. CARDENALIN [Suspect]
     Dosage: 4 MG, 1X/DAY
     Route: 048
     Dates: start: 20080701
  2. ADALAT [Concomitant]
     Dosage: UNK
     Route: 048

REACTIONS (1)
  - BLOOD PRESSURE INCREASED [None]
